FAERS Safety Report 17933895 (Version 1)
Quarter: 2020Q2

REPORT INFORMATION
  Report Type: Spontaneous
  Country: US (occurrence: US)
  Receive Date: 20200624
  Receipt Date: 20200624
  Transmission Date: 20200714
  Serious: Yes (Hospitalization, Other)
  Sender: FDA-Public Use
  Company Number: US-CADILA HEALTHCARE LIMITED-US-ZYDUS-052248

PATIENT

DRUGS (2)
  1. METFORMIN [Suspect]
     Active Substance: METFORMIN HYDROCHLORIDE
     Indication: PRODUCT USED FOR UNKNOWN INDICATION
     Dosage: UNK (15-20G, METFORMIN STRENGTH 500 MG)
     Route: 048
  2. INSULIN [Suspect]
     Active Substance: INSULIN NOS
     Indication: PRODUCT USED FOR UNKNOWN INDICATION
     Dosage: UNK
     Route: 065

REACTIONS (8)
  - Hyperthermia [Unknown]
  - Encephalopathy [Unknown]
  - Lactic acidosis [Unknown]
  - Rhabdomyolysis [Unknown]
  - Hypotension [Unknown]
  - Intentional overdose [Unknown]
  - Sepsis [Unknown]
  - Cerebral ischaemia [Unknown]
